FAERS Safety Report 22222845 (Version 1)
Quarter: 2023Q2

REPORT INFORMATION
  Report Type: Spontaneous
  Country: US (occurrence: None)
  Receive Date: 20230418
  Receipt Date: 20230418
  Transmission Date: 20230722
  Serious: No
  Sender: FDA-Public Use
  Company Number: 2023A077368

PATIENT
  Age: 787 Month
  Sex: Female
  Weight: 83 kg

DRUGS (1)
  1. BREZTRI [Suspect]
     Active Substance: BUDESONIDE\FORMOTEROL\GLYCOPYRROLATE
     Indication: Chronic obstructive pulmonary disease
     Route: 055
     Dates: start: 202302, end: 202303

REACTIONS (8)
  - Visual impairment [Unknown]
  - Heart rate irregular [Unknown]
  - Exercise electrocardiogram abnormal [Unknown]
  - Tremor [Unknown]
  - Respiration abnormal [Unknown]
  - Asthma [Unknown]
  - Secretion discharge [Unknown]
  - Memory impairment [Unknown]

NARRATIVE: CASE EVENT DATE: 20230201
